FAERS Safety Report 8580623-9 (Version None)
Quarter: 2012Q3

REPORT INFORMATION
  Report Type: 
  Country: None (occurrence: None)
  Receive Date: 20120809
  Receipt Date: 20120730
  Transmission Date: 20120928
  Serious: Yes (Hospitalization)
  Sender: FDA-Public Use
  Company Number: US-BIOGENIDEC-2012BI021523

PATIENT
  Age: 53 Year

DRUGS (20)
  1. TYSABRI [Suspect]
     Indication: MULTIPLE SCLEROSIS
     Route: 042
     Dates: start: 20120322
  2. ASCORBIC ACID [Concomitant]
     Route: 048
  3. MACRODANTIN [Concomitant]
     Route: 048
  4. COLACE [Concomitant]
     Route: 048
  5. THERA TAB [Concomitant]
     Route: 048
  6. ABILIFY [Concomitant]
     Route: 048
  7. PRILOSEC [Concomitant]
     Route: 048
  8. DETROL LA [Concomitant]
     Route: 048
  9. CYMBALTA [Concomitant]
     Route: 048
  10. SYMMETREL [Concomitant]
     Route: 048
  11. DULCOLAX [Concomitant]
  12. CARAFATE [Concomitant]
     Route: 048
  13. NORCO [Concomitant]
     Route: 048
  14. DITROPAN [Concomitant]
     Route: 048
  15. LIORESAL [Concomitant]
     Route: 048
  16. AMBIEN [Concomitant]
     Route: 048
  17. ATIVAN [Concomitant]
  18. RESTORIL [Concomitant]
     Route: 048
  19. NEURONTIN [Concomitant]
     Route: 048
  20. NIFEREX-150 ORAL [Concomitant]
     Route: 048

REACTIONS (5)
  - CONSTIPATION [None]
  - SEPSIS [None]
  - DECUBITUS ULCER [None]
  - DYSPNOEA [None]
  - URINARY TRACT INFECTION [None]
